FAERS Safety Report 5361132-7 (Version None)
Quarter: 2007Q2

REPORT INFORMATION
  Report Type: 
  Country: None (occurrence: None)
  Receive Date: 20070614
  Receipt Date: 20070604
  Transmission Date: 20071010
  Serious: Yes (Hospitalization)
  Sender: FDA-Public Use
  Company Number: GXKR2007FR04838

PATIENT
  Age: 68 Year
  Sex: Female

DRUGS (1)
  1. QUINIDINE (NGX) (QUINIDINE) UNKNOWN [Suspect]
     Indication: ARRHYTHMIA

REACTIONS (10)
  - ACTIVATED PARTIAL THROMBOPLASTIN TIME PROLONGED [None]
  - ANTIBODY TEST POSITIVE [None]
  - ANTIPHOSPHOLIPID ANTIBODIES [None]
  - COAGULATION FACTOR VIII LEVEL INCREASED [None]
  - CONTUSION [None]
  - HAEMATOMA [None]
  - HYPOPROTHROMBINAEMIA [None]
  - INCREASED TENDENCY TO BRUISE [None]
  - PROTHROMBIN LEVEL DECREASED [None]
  - PROTHROMBIN TIME PROLONGED [None]
